FAERS Safety Report 18734962 (Version 1)
Quarter: 2021Q1

REPORT INFORMATION
  Report Type: Spontaneous
  Country: IT (occurrence: IT)
  Receive Date: 20210113
  Receipt Date: 20210113
  Transmission Date: 20210419
  Serious: Yes (Other)
  Sender: FDA-Public Use
  Company Number: IT-ABBVIE-21K-083-3728934-00

PATIENT

DRUGS (1)
  1. IBRUTINIB [Suspect]
     Active Substance: IBRUTINIB
     Indication: CHRONIC LYMPHOCYTIC LEUKAEMIA
     Route: 048

REACTIONS (7)
  - Atrial fibrillation [Unknown]
  - Type 2 diabetes mellitus [Unknown]
  - Hepatic failure [Unknown]
  - Pneumonia [Unknown]
  - Progressive multifocal leukoencephalopathy [Unknown]
  - Haemorrhage [Unknown]
  - Hypertriglyceridaemia [Unknown]
